FAERS Safety Report 4807812-0 (Version None)
Quarter: 2005Q4

REPORT INFORMATION
  Report Type: 
  Country: None (occurrence: None)
  Receive Date: 20051020
  Receipt Date: 20051011
  Transmission Date: 20060501
  Serious: Yes (Hospitalization)
  Sender: FDA-Public Use
  Company Number: 2005135621

PATIENT
  Age: 68 Year
  Sex: Male

DRUGS (4)
  1. DOXAZOSIN MESYLATE [Suspect]
     Indication: HYPOTENSION
     Dosage: 0.5 MG (0.5 MG, QD). ORAL
     Route: 048
     Dates: start: 20050112, end: 20050920
  2. LIPITOR [Suspect]
     Indication: HYPERLIPIDAEMIA
     Dosage: 5 MG (5 MG QD), ORAL
     Route: 048
     Dates: start: 20050112, end: 20050912
  3. LOSARTAN POTASSIUM [Suspect]
     Indication: HYPERTENSION
     Dosage: 25 MG (25 MG, QD), ORAL
     Route: 048
     Dates: start: 20050112, end: 20050920
  4. CONIEL (BENIDIPINE HYDROCHLORIDE) [Suspect]
     Indication: HYPERTENSION
     Dosage: 2 MG (2 MG, QD), ORAL
     Route: 048
     Dates: start: 20050702, end: 20050910

REACTIONS (5)
  - ASTHENIA [None]
  - DYSSTASIA [None]
  - LIVER DISORDER [None]
  - MALAISE [None]
  - RHABDOMYOLYSIS [None]
